FAERS Safety Report 4505824-8 (Version None)
Quarter: 2004Q4

REPORT INFORMATION
  Report Type: 
  Country: None (occurrence: None)
  Receive Date: 20041025
  Receipt Date: 20040507
  Transmission Date: 20050328
  Serious: Yes (Hospitalization, Other)
  Sender: FDA-Public Use
  Company Number: US-JNJFOC-20040306341

PATIENT
  Age: 66 Year
  Sex: Male
  Weight: 74.8435 kg

DRUGS (9)
  1. REMICADE [Suspect]
     Indication: RHEUMATOID ARTHRITIS
     Dosage: SEE IMAGE
     Route: 042
     Dates: start: 20040225, end: 20040225
  2. REMICADE [Suspect]
     Indication: RHEUMATOID ARTHRITIS
     Dosage: SEE IMAGE
     Route: 042
     Dates: start: 20031215
  3. REMICADE [Suspect]
     Indication: RHEUMATOID ARTHRITIS
     Dosage: SEE IMAGE
     Route: 042
     Dates: start: 20040108
  4. REMICADE [Suspect]
  5. METHOTREXATE [Suspect]
  6. VIOXX [Concomitant]
  7. PREDNISONE [Concomitant]
  8. PLAQUENIL [Concomitant]
  9. TYLENOL ARTHRITIS (PARACETAMIOL) [Concomitant]

REACTIONS (5)
  - CYTOMEGALOVIRUS INFECTION [None]
  - EYE PAIN [None]
  - PHOTOPHOBIA [None]
  - PNEUMONIA [None]
  - PULMONARY FIBROSIS [None]
